FAERS Safety Report 4980969-7 (Version None)
Quarter: 2006Q1

REPORT INFORMATION
  Report Type: 
  Country: None (occurrence: None)
  Receive Date: 20060223
  Receipt Date: 20051102
  Transmission Date: 20060701
  Serious: Yes (Other)
  Sender: FDA-Public Use
  Company Number: US-JNJFOC-20050902696

PATIENT
  Age: 61 Year
  Sex: Female
  Weight: 68.3 kg

DRUGS (10)
  1. RISPERDAL CONSTA [Suspect]
     Indication: SCHIZOAFFECTIVE DISORDER
     Dosage: SEE IMAGE
     Route: 030
     Dates: start: 20050621, end: 20050705
  2. RISPERIDONE [Suspect]
     Indication: SCHIZOAFFECTIVE DISORDER
     Dosage: 3 MG, 1 IN 1 D, ORAL
     Route: 048
  3. FOSINOPRIL SODIUM [Concomitant]
  4. METFORMIN [Concomitant]
  5. CLONAZEPAM [Concomitant]
  6. ZOLPIDEM TARTRATE [Concomitant]
  7. TOLNAFTATE (TOLNAFTATE) [Concomitant]
  8. ATENOLOL [Concomitant]
  9. COGENTIN [Concomitant]
  10. SIMVASTATIN [Concomitant]

REACTIONS (2)
  - NEUROLEPTIC MALIGNANT SYNDROME [None]
  - RHABDOMYOLYSIS [None]
